FAERS Safety Report 20005271 (Version 1)
Quarter: 2021Q4

REPORT INFORMATION
  Report Type: Spontaneous
  Country: US (occurrence: US)
  Receive Date: 20211028
  Receipt Date: 20211028
  Transmission Date: 20220303
  Serious: Yes (Life-Threatening, Hospitalization, Other)
  Sender: FDA-Public Use
  Company Number: US-SUN PHARMACEUTICAL INDUSTRIES LTD-2021R1-315392

PATIENT
  Age: 63 Year
  Sex: Female

DRUGS (1)
  1. FLECAINIDE ACETATE [Suspect]
     Active Substance: FLECAINIDE ACETATE
     Indication: Supraventricular tachycardia
     Dosage: UNK
     Route: 065

REACTIONS (7)
  - Toxicity to various agents [Unknown]
  - Metastases to abdominal cavity [Unknown]
  - Hypotension [Not Recovered/Not Resolved]
  - Oliguria [Unknown]
  - Hyponatraemia [Unknown]
  - Tachyarrhythmia [Recovered/Resolved]
  - Cardiac arrest [Unknown]
